FAERS Safety Report 4562941-4 (Version None)
Quarter: 2005Q1

REPORT INFORMATION
  Report Type: 
  Country: None (occurrence: None)
  Receive Date: 20050121
  Receipt Date: 20050107
  Transmission Date: 20050727
  Serious: Yes (Hospitalization)
  Sender: FDA-Public Use
  Company Number: 2005014699

PATIENT
  Age: 84 Year
  Sex: Female

DRUGS (3)
  1. CELECOXIB           (CELECOXIB) [Suspect]
     Indication: ARTHRITIS
     Dosage: 100 MG, 2 IN 1 D, ORAL
     Route: 048
     Dates: start: 20041026, end: 20041214
  2. CODEINE PHOSPHATE AND ACETAMINOPHEN [Concomitant]
  3. ATENOLOL [Concomitant]

REACTIONS (1)
  - PULMONARY OEDEMA [None]
